FAERS Safety Report 21597823 (Version 1)
Quarter: 2022Q4

REPORT INFORMATION
  Report Type: Spontaneous
  Country: SG (occurrence: SG)
  Receive Date: 20221115
  Receipt Date: 20221115
  Transmission Date: 20230113
  Serious: Yes (Hospitalization, Other)
  Sender: FDA-Public Use
  Company Number: SG-BECTON DICKINSON-SG-BD-22-000410

PATIENT
  Age: 44 Year
  Sex: Male

DRUGS (1)
  1. CHLORHEXIDINE GLUCONATE\ISOPROPYL ALCOHOL [Suspect]
     Active Substance: CHLORHEXIDINE GLUCONATE\ISOPROPYL ALCOHOL
     Indication: Infection prophylaxis
     Dosage: UNK
     Route: 061

REACTIONS (3)
  - Cellulitis [Recovering/Resolving]
  - Dermatitis contact [Recovering/Resolving]
  - Hypersensitivity [Recovering/Resolving]
